FAERS Safety Report 6680852-5 (Version None)
Quarter: 2010Q2

REPORT INFORMATION
  Report Type: 
  Country: None (occurrence: None)
  Receive Date: 20100412
  Receipt Date: 20100325
  Transmission Date: 20101027
  Serious: Yes (Hospitalization)
  Sender: FDA-Public Use
  Company Number: TCI2010A01123

PATIENT
  Sex: Female

DRUGS (2)
  1. ACTOS [Suspect]
     Indication: TYPE 2 DIABETES MELLITUS
     Dosage: (1 IN 1 D)
     Route: 048
  2. MP-513 (CODE NOT BROKEN) (ORAL ANTIDIABETICS) [Suspect]
     Indication: TYPE 2 DIABETES MELLITUS
     Dosage: MP-513 OR PLACEBO
     Route: 048
     Dates: start: 20100213

REACTIONS (1)
  - HAEMORRHOIDS [None]
